FAERS Safety Report 20319184 (Version 3)
Quarter: 2022Q1

REPORT INFORMATION
  Report Type: Spontaneous
  Country: JP (occurrence: None)
  Receive Date: 20220110
  Receipt Date: 20220329
  Transmission Date: 20220424
  Serious: Yes (Life-Threatening, Other)
  Sender: FDA-Public Use
  Company Number: 2021A754481

PATIENT
  Age: 62 Year
  Sex: Male
  Weight: 70 kg

DRUGS (7)
  1. TAGRISSO [Suspect]
     Active Substance: OSIMERTINIB
     Indication: Non-small cell lung cancer
     Route: 048
     Dates: start: 20181220, end: 20200701
  2. ALIMTA [Suspect]
     Active Substance: PEMETREXED DISODIUM
     Indication: Non-small cell lung cancer
     Route: 042
     Dates: start: 20200702, end: 20200702
  3. ASTOMIN [Concomitant]
     Indication: Non-small cell lung cancer
     Route: 048
     Dates: start: 20181220
  4. CALCIUM CARBONATE\CHOLECALCIFEROL\MAGNESIUM CARBONATE [Concomitant]
     Active Substance: CALCIUM CARBONATE\CHOLECALCIFEROL\MAGNESIUM CARBONATE
     Indication: Non-small cell lung cancer
     Dosage: PRECIPITATED CALCIUM CARBONATE 7625 MG/CHOLECALCIFEROL 200 IU/MAGNESIUM CARBONATE 59.2
     Route: 048
     Dates: start: 20181220
  5. DENOSUMAB [Concomitant]
     Active Substance: DENOSUMAB
     Indication: Non-small cell lung cancer
     Route: 058
     Dates: start: 20181220, end: 20200611
  6. CARBOCYSTEINE [Concomitant]
     Active Substance: CARBOCYSTEINE
     Indication: Non-small cell lung cancer
     Route: 048
     Dates: start: 20200310
  7. ACETAMINOPHEN [Concomitant]
     Active Substance: ACETAMINOPHEN
     Indication: Non-small cell lung cancer
     Route: 048
     Dates: start: 20200310

REACTIONS (5)
  - Cardiac failure [Recovered/Resolved]
  - Pulmonary toxicity [Recovering/Resolving]
  - Lung carcinoma cell type unspecified recurrent [Unknown]
  - Rash [Recovering/Resolving]
  - Liver disorder [Unknown]

NARRATIVE: CASE EVENT DATE: 20190201
